FAERS Safety Report 17157847 (Version 7)
Quarter: 2020Q2

REPORT INFORMATION
  Report Type: Spontaneous
  Country: US (occurrence: US)
  Receive Date: 20191216
  Receipt Date: 20200624
  Transmission Date: 20200713
  Serious: Yes (Other)
  Sender: FDA-Public Use
  Company Number: US-LEXICON PHARMACEUTICALS, INC-19-1606-01076

PATIENT
  Age: 69 Year
  Sex: Male

DRUGS (5)
  1. XERMELO [Suspect]
     Active Substance: TELOTRISTAT ETHYL
     Dates: start: 20191203
  2. IRON [Concomitant]
     Active Substance: IRON
  3. XERMELO [Suspect]
     Active Substance: TELOTRISTAT ETHYL
     Indication: CARCINOID SYNDROME
     Dates: start: 20191114, end: 20191203
  4. SANDOSTATIN [Concomitant]
     Active Substance: OCTREOTIDE ACETATE
  5. XERMELO [Suspect]
     Active Substance: TELOTRISTAT ETHYL

REACTIONS (5)
  - Off label use [Not Recovered/Not Resolved]
  - Post procedural complication [Unknown]
  - Flushing [Unknown]
  - Surgery [Unknown]
  - Blood pressure increased [Not Recovered/Not Resolved]

NARRATIVE: CASE EVENT DATE: 2019
